FAERS Safety Report 9630307 (Version 1)
Quarter: 2013Q4

REPORT INFORMATION
  Report Type: Spontaneous
  Country: GB (occurrence: GB)
  Receive Date: 20131018
  Receipt Date: 20131018
  Transmission Date: 20140711
  Serious: Yes (Other)
  Sender: FDA-Public Use
  Company Number: GB-ROCHE-1289338

PATIENT
  Age: 57 Year
  Sex: Female

DRUGS (3)
  1. RIBAVIRIN [Suspect]
     Indication: HEPATITIS C
     Route: 048
     Dates: start: 20121107
  2. INTERFERON ALFA-2A [Suspect]
     Indication: HEPATITIS C
     Route: 058
     Dates: start: 20121107
  3. TELAPREVIR [Suspect]
     Indication: HEPATITIS C
     Route: 048
     Dates: start: 20121107

REACTIONS (5)
  - Anaemia [Not Recovered/Not Resolved]
  - Fatigue [Not Recovered/Not Resolved]
  - Proctalgia [Not Recovered/Not Resolved]
  - Pruritus [Not Recovered/Not Resolved]
  - Anal pruritus [Not Recovered/Not Resolved]
